FAERS Safety Report 16663572 (Version 1)
Quarter: 2019Q3

REPORT INFORMATION
  Report Type: Report from Study
  Country: US (occurrence: US)
  Receive Date: 20190802
  Receipt Date: 20190802
  Transmission Date: 20191004
  Serious: No
  Sender: FDA-Public Use
  Company Number: US-EXELIXIS-CABO-19020786

PATIENT
  Sex: Male

DRUGS (1)
  1. CABOMETYX [Suspect]
     Active Substance: CABOZANTINIB S-MALATE
     Indication: RENAL CANCER
     Dosage: 40 MG, QD (10 PM WITHOUT FOOD)
     Dates: start: 20190409, end: 201905

REACTIONS (4)
  - Rash [Unknown]
  - Hypoaesthesia [Recovered/Resolved]
  - Brain oedema [Unknown]
  - Balance disorder [Recovered/Resolved]
